FAERS Safety Report 19242045 (Version 1)
Quarter: 2021Q2

REPORT INFORMATION
  Report Type: Spontaneous
  Country: IT (occurrence: IT)
  Receive Date: 20210510
  Receipt Date: 20210510
  Transmission Date: 20210717
  Serious: Yes (Other)
  Sender: FDA-Public Use
  Company Number: IT-INSUD PHARMA-2104IT00527

PATIENT

DRUGS (9)
  1. TESTOSTERONE. [Suspect]
     Active Substance: TESTOSTERONE
     Indication: MUSCULAR WEAKNESS
     Dosage: REPEATED INJECTIONS
     Route: 042
     Dates: start: 201906, end: 201908
  2. GAMMA?HYDROXYBUTYRATE [Suspect]
     Active Substance: OXYBATE
     Indication: ERECTILE DYSFUNCTION
  3. COBICISTAT;ELVITEGRAVIR;EMTRICITABINE;TENOFOVIR ALAFENAMIDE [Suspect]
     Active Substance: COBICISTAT\ELVITEGRAVIR\EMTRICITABINE\TENOFOVIR ALAFENAMIDE FUMARATE
     Indication: HIV INFECTION
     Dosage: MAINTENANCE THERAPY, ONCE DAILY
     Route: 065
  4. STANOZOLOL [Suspect]
     Active Substance: STANOZOLOL
     Indication: FATIGUE
  5. TESTOSTERONE. [Suspect]
     Active Substance: TESTOSTERONE
     Indication: FATIGUE
  6. BETAMETHASONE. [Suspect]
     Active Substance: BETAMETHASONE
     Indication: PSORIASIS
     Dosage: 0.05% SPRAY, LOCAL APPLICATIONS SEVERAL TIMES A DAY AT DOSES MUCH IN EXCESS
     Route: 061
  7. STANOZOLOL [Suspect]
     Active Substance: STANOZOLOL
     Indication: MUSCULAR WEAKNESS
     Dosage: REPEATED INJECTIONS
     Route: 042
     Dates: start: 201906, end: 201908
  8. GAMMA?HYDROXYBUTYRATE [Suspect]
     Active Substance: OXYBATE
     Indication: DEPRESSION
     Dosage: DAILY USE OF INCREASING DOSES
     Route: 065
  9. GAMMA?HYDROXYBUTYRATE [Suspect]
     Active Substance: OXYBATE
     Indication: FATIGUE
     Dosage: OCCASIONAL CONSUMPTION DURING THE WEEKENDS
     Route: 065
     Dates: start: 2019

REACTIONS (17)
  - Hypothalamic pituitary adrenal axis suppression [Recovered/Resolved]
  - Libido decreased [Unknown]
  - Alopecia [Unknown]
  - Muscular weakness [Unknown]
  - Drug abuse [Unknown]
  - Intentional product misuse [Unknown]
  - Cushing^s syndrome [Recovered/Resolved]
  - Lipohypertrophy [Unknown]
  - Oedema peripheral [Unknown]
  - Skin fragility [Unknown]
  - Psoriasis [Recovered/Resolved]
  - Fatigue [Unknown]
  - Abdominal distension [Unknown]
  - Skin striae [Unknown]
  - Condition aggravated [Recovered/Resolved]
  - Substance use [Unknown]
  - Depression [Unknown]
